FAERS Safety Report 8567842-2 (Version None)
Quarter: 2012Q3

REPORT INFORMATION
  Report Type: 
  Country: None (occurrence: None)
  Receive Date: 20120803
  Receipt Date: 20120723
  Transmission Date: 20120928
  Serious: Yes (Other)
  Sender: FDA-Public Use
  Company Number: US-ELI_LILLY_AND_COMPANY-US201207007338

PATIENT
  Age: 36 Year
  Sex: Male

DRUGS (5)
  1. HUMULIN R [Suspect]
     Dosage: UNK, BID
  2. CIALIS [Suspect]
  3. VIAGRA [Concomitant]
  4. INSULIN [Concomitant]
  5. HUMULIN N [Suspect]
     Dosage: UNK, BID

REACTIONS (3)
  - HYPOGLYCAEMIC UNCONSCIOUSNESS [None]
  - DIARRHOEA [None]
  - BLOOD GLUCOSE DECREASED [None]
